FAERS Safety Report 6669460-X (Version None)
Quarter: 2010Q2

REPORT INFORMATION
  Report Type: 
  Country: None (occurrence: None)
  Receive Date: 20100406
  Receipt Date: 20100325
  Transmission Date: 20101027
  Serious: Yes (Other)
  Sender: FDA-Public Use
  Company Number: PHHY2010GB19842

PATIENT

DRUGS (1)
  1. EXELON [Suspect]
     Dosage: 6 MG, BID
     Route: 048

REACTIONS (1)
  - BLADDER DISORDER [None]
